FAERS Safety Report 15711400 (Version 1)
Quarter: 2018Q4

REPORT INFORMATION
  Report Type: Spontaneous
  Country: US (occurrence: US)
  Receive Date: 20181211
  Receipt Date: 20181211
  Transmission Date: 20190205
  Serious: No
  Sender: FDA-Public Use
  Company Number: US-ASTRAZENECA-2018SF60296

PATIENT
  Age: 0 Year
  Sex: Male

DRUGS (1)
  1. SYNAGIS [Suspect]
     Active Substance: PALIVIZUMAB
     Indication: RESPIRATORY SYNCYTIAL VIRUS INFECTION
     Dosage: UNKNOWN
     Route: 030
     Dates: start: 2018, end: 2018

REACTIONS (3)
  - Erythema [Unknown]
  - Nodule [Unknown]
  - Scar [Unknown]

NARRATIVE: CASE EVENT DATE: 2018
